FAERS Safety Report 19993096 (Version 1)
Quarter: 2021Q4

REPORT INFORMATION
  Report Type: Spontaneous
  Country: US (occurrence: US)
  Receive Date: 20211025
  Receipt Date: 20211025
  Transmission Date: 20220304
  Serious: Yes (Other)
  Sender: FDA-Public Use
  Company Number: US-SAMSUNG-SB-2021-25013

PATIENT
  Age: 53 Year
  Sex: Female

DRUGS (4)
  1. INFLIXIMAB [Suspect]
     Active Substance: INFLIXIMAB
     Indication: Uveitis
     Dosage: UNKNOWN
     Route: 065
  2. REPOSITORY CORTICOTROPIN [Concomitant]
     Active Substance: REPOSITORY CORTICOTROPIN
     Indication: Uveitis
     Dosage: UNKNOWN
     Route: 065
  3. METHOTREXATE [Concomitant]
     Active Substance: METHOTREXATE
     Indication: Uveitis
     Dosage: UNKNOWN
     Route: 065
  4. AZATHIOPRINE [Concomitant]
     Active Substance: AZATHIOPRINE
     Indication: Uveitis
     Dosage: UNKNOWN
     Route: 065

REACTIONS (3)
  - Uveitis [Recovered/Resolved]
  - Paradoxical drug reaction [Unknown]
  - Off label use [Unknown]
